FAERS Safety Report 4746043-X (Version None)
Quarter: 2005Q3

REPORT INFORMATION
  Report Type: 
  Country: None (occurrence: None)
  Receive Date: 20050816
  Receipt Date: 20050804
  Transmission Date: 20060218
  Serious: Yes (Death)
  Sender: FDA-Public Use
  Company Number: JP-JNJFOC-20050802341

PATIENT
  Sex: Female

DRUGS (68)
  1. FENTANYL [Suspect]
     Route: 062
  2. FENTANYL [Suspect]
     Indication: CANCER PAIN
     Route: 062
  3. DUROTEP [Suspect]
     Route: 062
  4. DUROTEP [Suspect]
     Route: 062
  5. DUROTEP [Suspect]
     Route: 062
  6. DUROTEP [Suspect]
     Route: 062
  7. DUROTEP [Suspect]
     Route: 062
  8. DUROTEP [Suspect]
     Route: 062
  9. DUROTEP [Suspect]
     Route: 062
  10. DUROTEP [Suspect]
     Route: 062
  11. DUROTEP [Suspect]
     Route: 062
  12. DUROTEP [Suspect]
     Indication: CANCER PAIN
     Route: 062
  13. FENTANYL CITRATE [Concomitant]
     Route: 050
  14. FENTANYL CITRATE [Concomitant]
     Indication: CANCER PAIN
     Route: 050
  15. VACCINES [Concomitant]
     Dosage: 2 DOSAGE FORM/DAY
     Route: 058
  16. VACCINES [Concomitant]
     Dosage: 2 DOSAGE FORM/DAY
     Route: 058
  17. VACCINES [Concomitant]
     Dosage: 1 DOSAGE FORM/DAY
     Route: 058
  18. VACCINES [Concomitant]
     Dosage: 1 DOSAGE FORM/DAY
     Route: 058
  19. VACCINES [Concomitant]
     Dosage: 1 DOSAGE FORM/DAY
     Route: 058
  20. VACCINES [Concomitant]
     Dosage: 1 DOSAGE FORM/DAY
     Route: 058
  21. VACCINES [Concomitant]
     Dosage: 1 DOSAGE FORM/DAY
     Route: 058
  22. VACCINES [Concomitant]
     Dosage: 1 DOSAGE FORM/DAY
     Route: 058
  23. VACCINES [Concomitant]
     Dosage: 1 DOSAGE FORM/DAY
     Route: 058
  24. VACCINES [Concomitant]
     Dosage: 1 DOSAGE FORM/DAY
     Route: 058
  25. VACCINES [Concomitant]
     Dosage: 1 DOSAGE FORM/DAY
     Route: 058
  26. VACCINES [Concomitant]
     Dosage: 1 DOSAGE FORM/DAY
     Route: 058
  27. VACCINES [Concomitant]
     Dosage: 1 DOSAGE FORM/DAY
     Route: 058
  28. VACCINES [Concomitant]
     Dosage: 1 DOSAGE FORM/DAY
     Route: 058
  29. VACCINES [Concomitant]
     Dosage: 1 DOSAGE FORM/DAY
     Route: 058
  30. DIPHENHYDRAMINE HCL [Concomitant]
     Dosage: 1 DOSAGE FORM PER DAY AS NEEDED
     Route: 048
  31. DIPROPHYLLINE [Concomitant]
     Dosage: 1 DOSAGE FORM/DAY AS NEEDED
     Route: 048
  32. METOCLOPRAMIDE [Concomitant]
  33. METOCLOPRAMIDE [Concomitant]
  34. METOCLOPRAMIDE [Concomitant]
  35. METOCLOPRAMIDE [Concomitant]
  36. METOCLOPRAMIDE [Concomitant]
  37. BETAMETHASONE [Concomitant]
     Indication: CANCER PAIN
     Route: 048
  38. BETAMETHASONE SODIUM PHOSPHATE [Concomitant]
  39. ACETATED RINGER [Concomitant]
  40. PROCHLORPERAZINE MALEATE [Concomitant]
  41. PROCHLORPERAZINE MALEATE [Concomitant]
  42. OXYCODONE HCL [Concomitant]
     Indication: CANCER PAIN
     Route: 048
  43. SENNOSIDE [Concomitant]
     Indication: CONSTIPATION
     Route: 048
  44. MORPHINE HCL ELIXIR [Concomitant]
     Indication: CANCER PAIN
     Dosage: 10 MG/DAY AS NEEDED
     Route: 054
  45. LACTULOSE [Concomitant]
     Indication: CONSTIPATION
     Route: 048
  46. FUROSEMIDE [Concomitant]
  47. FUROSEMIDE [Concomitant]
  48. DOPAMINE HCL [Concomitant]
  49. DOPAMINE HCL [Concomitant]
  50. RANITIDINE HYDROCHLORIDE [Concomitant]
  51. RANITIDINE HYDROCHLORIDE [Concomitant]
  52. HUMAN PLASMA PROTEIN FRACTION [Concomitant]
     Indication: BLOOD PRESSURE MANAGEMENT
  53. FLURBIPROFEN AXETIL [Concomitant]
  54. FLURBIPROFEN AXETIL [Concomitant]
     Indication: CANCER PAIN
  55. AMINO ACID PREPARATIONS FOR HEPATIC INSUFFICIENCY [Concomitant]
     Indication: NUTRITIONAL SUPPORT
  56. POVIDONE IODINE [Concomitant]
     Indication: INFECTION PROPHYLAXIS
  57. ALUMINUM HYDROXIDE MAGNESIUM HYDROXIDE [Concomitant]
  58. ALUMINUM HYDROXIDE MAGNESIUM HYDROXIDE [Concomitant]
     Indication: GASTRITIS
  59. LIDOCAINE [Concomitant]
     Route: 061
  60. HYDROXYZINE HYDROCHLORIDE [Concomitant]
     Route: 030
  61. HYDROXYZINE HYDROCHLORIDE [Concomitant]
     Route: 030
  62. HYDROXYZINE HYDROCHLORIDE [Concomitant]
     Indication: ANXIETY
     Route: 030
  63. MORPHINE HCL ELIXIR [Concomitant]
     Dosage: 10 MG/DAY AS NEEDED
     Route: 048
  64. KETOPROFEN [Concomitant]
     Indication: CANCER PAIN
  65. LOXOPROFEN SODIUM [Concomitant]
     Indication: CANCER PAIN
     Dosage: 60 MG/DAY AS NEEDED
     Route: 048
  66. TEPRENONE [Concomitant]
     Indication: GASTRITIS
     Dosage: 50 MG/DAY AS NEEDED
     Route: 048
  67. MAGNESIUM OXIDE [Concomitant]
     Indication: CONSTIPATION
     Dosage: 0.5 G/DAY AS NEEDED
     Route: 048
  68. SENNA LEAF-SENNA POD [Concomitant]
     Indication: CONSTIPATION
     Dosage: 0.5 G/DAY AS NEEDED
     Route: 048

REACTIONS (1)
  - CERVIX CARCINOMA [None]
